FAERS Safety Report 15093284 (Version 2)
Quarter: 2018Q4

REPORT INFORMATION
  Report Type: Spontaneous
  Country: US (occurrence: US)
  Receive Date: 20180629
  Receipt Date: 20181115
  Transmission Date: 20190204
  Serious: Yes (Other)
  Sender: FDA-Public Use
  Company Number: US-TAKEDA-2018TUS021131

PATIENT

DRUGS (106)
  1. ALPHAGAN P [Concomitant]
     Active Substance: BRIMONIDINE TARTRATE
     Indication: GLAUCOMA
     Dosage: UNK
     Dates: start: 2013, end: 2015
  2. ALPRAZOLAM. [Concomitant]
     Active Substance: ALPRAZOLAM
     Indication: ANXIETY
     Dosage: UNK
     Dates: start: 2007, end: 2012
  3. AMBIEN [Concomitant]
     Active Substance: ZOLPIDEM TARTRATE
     Indication: INSOMNIA
     Dosage: UNK
     Dates: start: 2006, end: 2012
  4. BENZONATATE. [Concomitant]
     Active Substance: BENZONATATE
     Indication: ANTITUSSIVE THERAPY
     Dosage: UNK
     Dates: start: 2007, end: 2008
  5. CLINDAMYCIN. [Concomitant]
     Active Substance: CLINDAMYCIN
     Dosage: UNK
     Dates: start: 2017
  6. CYMBALTA [Concomitant]
     Active Substance: DULOXETINE HYDROCHLORIDE
     Indication: DEPRESSION
     Dosage: UNK
     Dates: start: 2007
  7. GEMFIBROZIL. [Concomitant]
     Active Substance: GEMFIBROZIL
     Indication: BLOOD CHOLESTEROL
  8. IBUPROFEN. [Concomitant]
     Active Substance: IBUPROFEN
     Indication: ANALGESIC THERAPY
     Dosage: UNK
     Dates: start: 2017
  9. LIDOCAINE. [Concomitant]
     Active Substance: LIDOCAINE
     Indication: BACK PAIN
     Dosage: UNK
     Dates: start: 2013, end: 2017
  10. LYRICA [Concomitant]
     Active Substance: PREGABALIN
     Indication: SEIZURE
  11. METOPROLOL. [Concomitant]
     Active Substance: METOPROLOL
     Indication: HYPERTENSION
     Dosage: UNK
     Dates: start: 2011
  12. PROAIR HFA [Concomitant]
     Active Substance: ALBUTEROL SULFATE
     Indication: BRONCHITIS
     Dosage: UNK
     Dates: start: 2006, end: 2008
  13. RANITIDINE. [Concomitant]
     Active Substance: RANITIDINE
     Dosage: UNK
     Dates: start: 2007
  14. LEVOFLOXACIN. [Concomitant]
     Active Substance: LEVOFLOXACIN
     Dosage: UNK
     Dates: start: 201301, end: 201601
  15. NAPROXEN. [Concomitant]
     Active Substance: NAPROXEN
     Indication: ANALGESIC THERAPY
     Dosage: UNK
     Dates: start: 201407, end: 201408
  16. PHENYTOIN. [Concomitant]
     Active Substance: PHENYTOIN
     Indication: SEIZURE
     Dosage: UNK
     Dates: start: 200902
  17. ACETAMINOPHEN AND CODEINE [Concomitant]
     Active Substance: ACETAMINOPHEN\CODEINE PHOSPHATE
     Indication: ANALGESIC THERAPY
     Dosage: UNK
     Dates: start: 2013
  18. ACETAMINOPHEN AND CODEINE [Concomitant]
     Active Substance: ACETAMINOPHEN\CODEINE PHOSPHATE
     Dosage: UNK
     Dates: start: 2015
  19. DIVALPROEX SODIUM. [Concomitant]
     Active Substance: DIVALPROEX SODIUM
     Indication: SEIZURE
     Dosage: UNK
     Dates: start: 2017, end: 2018
  20. DULOXETINE. [Concomitant]
     Active Substance: DULOXETINE
     Indication: DEPRESSION
     Dosage: UNK
     Dates: start: 2015, end: 2018
  21. FERROUS                            /00023501/ [Concomitant]
     Indication: ANAEMIA
     Dosage: UNK
     Dates: start: 2006
  22. GABAPENTIN. [Concomitant]
     Active Substance: GABAPENTIN
     Indication: ANALGESIC THERAPY
  23. ISOMETHEPTENE DICHLORAL APAP [Concomitant]
     Indication: ANALGESIC THERAPY
     Dosage: UNK
     Dates: start: 2010
  24. RANITIDINE. [Concomitant]
     Active Substance: RANITIDINE
     Dosage: UNK
     Dates: start: 2013
  25. TUMS                               /00193601/ [Concomitant]
     Active Substance: CALCIUM CARBONATE\MAGNESIUM CARBONATE\MAGNESIUM TRISILICATE
  26. PROTONIX [Suspect]
     Active Substance: PANTOPRAZOLE SODIUM
     Indication: GASTROOESOPHAGEAL REFLUX DISEASE
     Dosage: 40 MG, QD
     Route: 048
     Dates: start: 201310, end: 201312
  27. AZITHROMYCIN ANHYDROUS. [Concomitant]
     Active Substance: AZITHROMYCIN ANHYDROUS
     Dosage: UNK
     Dates: start: 200903
  28. CIPROFLOXACIN. [Concomitant]
     Active Substance: CIPROFLOXACIN
     Dosage: UNK
     Dates: start: 201503, end: 201512
  29. DILANTIN [Concomitant]
     Active Substance: PHENYTOIN
     Indication: SEIZURE
     Dosage: UNK
     Dates: start: 200811, end: 20090807
  30. ABILIFY [Concomitant]
     Active Substance: ARIPIPRAZOLE
     Indication: DEPRESSION
     Dosage: UNK
     Dates: start: 2008, end: 2018
  31. ACETAMINOPHEN AND CODEINE [Concomitant]
     Active Substance: ACETAMINOPHEN\CODEINE PHOSPHATE
     Dosage: UNK
     Dates: start: 2017
  32. CARISOPRODOL. [Concomitant]
     Active Substance: CARISOPRODOL
     Indication: BACK PAIN
     Dosage: UNK
     Dates: start: 2006, end: 2010
  33. DIPHENHYDRAMINE. [Concomitant]
     Active Substance: DIPHENHYDRAMINE
     Indication: HYPERSENSITIVITY
     Dosage: UNK
     Dates: start: 2006, end: 2017
  34. FLUCONAZOLE. [Concomitant]
     Active Substance: FLUCONAZOLE
     Dosage: UNK
     Dates: start: 2008
  35. HYDROXYCHLOROQUINE [Concomitant]
     Active Substance: HYDROXYCHLOROQUINE
     Indication: HIV INFECTION
  36. INDERAL [Concomitant]
     Active Substance: PROPRANOLOL HYDROCHLORIDE
     Indication: HYPERTENSION
     Dosage: UNK
     Dates: start: 2006, end: 2007
  37. LATANOPROST. [Concomitant]
     Active Substance: LATANOPROST
     Indication: GLAUCOMA
     Dosage: UNK
     Dates: start: 2012
  38. LORAZEPAM. [Concomitant]
     Active Substance: LORAZEPAM
     Indication: SEIZURE
     Dosage: UNK
     Dates: start: 2006, end: 2007
  39. PROAIR HFA [Concomitant]
     Active Substance: ALBUTEROL SULFATE
     Dosage: UNK
     Dates: start: 2016
  40. PROCRIT [Concomitant]
     Active Substance: ERYTHROPOIETIN
     Indication: HIV INFECTION
  41. TRIAMCINOLONE [Concomitant]
     Active Substance: TRIAMCINOLONE
  42. XOPENEX [Concomitant]
     Active Substance: LEVALBUTEROL HYDROCHLORIDE
     Indication: BRONCHITIS
     Dosage: UNK
     Dates: start: 2007
  43. PREVACID [Suspect]
     Active Substance: LANSOPRAZOLE
     Indication: GASTROOESOPHAGEAL REFLUX DISEASE
     Dosage: 30 MG, QD
     Route: 048
     Dates: start: 200601, end: 200907
  44. AMOXCLAV                           /00852501/ [Concomitant]
     Active Substance: AMOXICILLIN\CLAVULANIC ACID
     Indication: TOOTH INFECTION
     Dosage: UNK
     Dates: start: 201706
  45. LISINOPRIL HCTZ [Concomitant]
     Active Substance: HYDROCHLOROTHIAZIDE\LISINOPRIL
     Indication: HYPERTENSION
     Dosage: UNK
     Dates: start: 200708, end: 200712
  46. MELOXICAM. [Concomitant]
     Active Substance: MELOXICAM
     Indication: ANALGESIC THERAPY
     Dosage: UNK
     Dates: start: 201202
  47. TRIMETHOPRIM. [Concomitant]
     Active Substance: TRIMETHOPRIM
     Dosage: UNK
     Dates: start: 200804, end: 201405
  48. BACLOFEN. [Concomitant]
     Active Substance: BACLOFEN
     Indication: MUSCLE RELAXANT THERAPY
     Dosage: UNK
     Dates: start: 2015, end: 2018
  49. BUSPIRONE [Concomitant]
     Active Substance: BUSPIRONE HYDROCHLORIDE
     Indication: ANXIETY
     Dosage: UNK
     Dates: start: 2006, end: 2017
  50. LEXAPRO [Concomitant]
     Active Substance: ESCITALOPRAM OXALATE
     Indication: DEPRESSION
     Dosage: UNK
     Dates: start: 2006, end: 2007
  51. LUNESTA [Concomitant]
     Active Substance: ESZOPICLONE
     Indication: INSOMNIA
     Dosage: UNK
     Dates: start: 2006, end: 2008
  52. LYRICA [Concomitant]
     Active Substance: PREGABALIN
     Indication: NEUROPATHY PERIPHERAL
  53. METHOCARBAMOL. [Concomitant]
     Active Substance: METHOCARBAMOL
     Indication: MUSCLE RELAXANT THERAPY
     Dosage: UNK
     Dates: start: 2009, end: 2015
  54. NITROSTAT [Concomitant]
     Active Substance: NITROGLYCERIN
     Indication: MYOCARDIAL INFARCTION
  55. OXCARBAZEPINE. [Concomitant]
     Active Substance: OXCARBAZEPINE
     Indication: SEIZURE
     Dosage: UNK
     Dates: start: 2009, end: 2010
  56. PROMETHAZINE [Concomitant]
     Active Substance: PROMETHAZINE\PROMETHAZINE HYDROCHLORIDE
     Indication: NAUSEA
     Dosage: UNK
     Dates: start: 2006, end: 2014
  57. REMERON [Concomitant]
     Active Substance: MIRTAZAPINE
     Indication: DEPRESSION
     Dosage: UNK
     Dates: start: 2011, end: 2012
  58. VITAMIN D                          /00107901/ [Concomitant]
     Active Substance: ERGOCALCIFEROL
     Indication: HYPOVITAMINOSIS
  59. ZYLET [Concomitant]
     Active Substance: LOTEPREDNOL ETABONATE\TOBRAMYCIN
  60. MAALOX ANTACID [Concomitant]
     Active Substance: ALUMINUM HYDROXIDE\DIMETHICONE\MAGNESIUM HYDROXIDE
  61. DEXILANT [Suspect]
     Active Substance: DEXLANSOPRAZOLE
     Indication: GASTROOESOPHAGEAL REFLUX DISEASE
     Dosage: 60 MG, QD
     Route: 048
     Dates: start: 201305, end: 201312
  62. AZITHROMYCIN ANHYDROUS. [Concomitant]
     Active Substance: AZITHROMYCIN ANHYDROUS
     Dosage: UNK
     Dates: start: 201205
  63. CELEBREX [Concomitant]
     Active Substance: CELECOXIB
     Indication: ANALGESIC THERAPY
     Dosage: UNK
     Dates: start: 2011, end: 201701
  64. HYDROCHLOROTHIAZIDE. [Concomitant]
     Active Substance: HYDROCHLOROTHIAZIDE
     Indication: HYPERTENSION
     Dosage: UNK
     Dates: start: 200708, end: 201007
  65. ALBUTEROL                          /00139501/ [Concomitant]
     Active Substance: ALBUTEROL
     Dosage: UNK
     Dates: start: 2013
  66. CHERATUSSIN AC [Concomitant]
     Active Substance: CODEINE PHOSPHATE\GUAIFENESIN
     Indication: ANTITUSSIVE THERAPY
     Dosage: UNK
     Dates: start: 2013
  67. DORZOL                             /01264101/ [Concomitant]
     Indication: GLAUCOMA
     Dosage: UNK
     Dates: start: 2012, end: 2016
  68. PRENATAL PLUS IRON [Concomitant]
     Active Substance: .ALPHA.-TOCOPHEROL ACETATE, DL-\.BETA.-CAROTENE\ASCORBIC ACID\CALCIUM CARBONATE\CHOLECALCIFEROL\CUPRIC OXIDE\CYANOCOBALAMIN\FERROUS FUMARATE\FOLIC ACID\NIACINAMIDE\PYRIDOXINE HYDROCHLORIDE\RIBOFLAVIN\THIAMINE MONONITRATE\VITAMIN A ACETATE\ZINC OXIDE
     Indication: VITAMIN SUPPLEMENTATION
  69. RESTASIS [Concomitant]
     Active Substance: CYCLOSPORINE
     Indication: GLAUCOMA
  70. DOXEPIN [Concomitant]
     Active Substance: DOXEPIN
     Indication: DEPRESSION
     Dosage: UNK
     Dates: start: 2007, end: 201011
  71. ARIPIPRAZOLE. [Concomitant]
     Active Substance: ARIPIPRAZOLE
     Indication: DEPRESSION
     Dosage: UNK
     Dates: start: 2017
  72. BENZONATATE. [Concomitant]
     Active Substance: BENZONATATE
     Dosage: UNK
     Dates: start: 2013
  73. DIPHENOXYLATE HCL + ATROPINE SULFATE [Concomitant]
     Active Substance: ATROPINE SULFATE\DIPHENOXYLATE HYDROCHLORIDE
     Indication: DIARRHOEA
     Dosage: UNK
     Dates: start: 2006, end: 2010
  74. DORZOLAMIDE [Concomitant]
     Active Substance: DORZOLAMIDE
     Indication: GLAUCOMA
     Dosage: UNK
     Dates: start: 2016
  75. EVOXAC [Concomitant]
     Active Substance: CEVIMELINE HYDROCHLORIDE
     Indication: DRY MOUTH
     Dosage: UNK
     Dates: start: 2008
  76. FLUCONAZOLE. [Concomitant]
     Active Substance: FLUCONAZOLE
     Dosage: UNK
     Dates: start: 2014
  77. KETOCONAZOLE. [Concomitant]
     Active Substance: KETOCONAZOLE
     Dosage: UNK
     Dates: start: 2016
  78. PROMETHEGAN [Concomitant]
     Active Substance: PROMETHAZINE HYDROCHLORIDE
     Indication: NAUSEA
     Dosage: UNK
     Dates: start: 2007, end: 2008
  79. VENLAFAXINE [Concomitant]
     Active Substance: VENLAFAXINE HYDROCHLORIDE
     Indication: DEPRESSION
  80. ZOLPIDEM [Concomitant]
     Active Substance: ZOLPIDEM\ZOLPIDEM TARTRATE
     Indication: INSOMNIA
  81. AVELOX [Concomitant]
     Active Substance: MOXIFLOXACIN HYDROCHLORIDE
     Dosage: UNK
     Dates: start: 201012
  82. SULFAMETHOXAZOLE [Concomitant]
     Active Substance: SULFAMETHOXAZOLE
     Dosage: UNK
     Dates: start: 200804, end: 201405
  83. CLOTRIMAZOLE. [Concomitant]
     Active Substance: CLOTRIMAZOLE
     Dosage: UNK
     Dates: start: 2008
  84. FLUTICASONE. [Concomitant]
     Active Substance: FLUTICASONE
     Dosage: UNK
     Dates: start: 2014, end: 2015
  85. HYDROCODONE BITARTRATE AND ACETAMINOPHEN [Concomitant]
     Active Substance: ACETAMINOPHEN\HYDROCODONE BITARTRATE
     Indication: ANALGESIC THERAPY
  86. LOPERAMIDE HCL [Concomitant]
     Active Substance: LOPERAMIDE HYDROCHLORIDE
     Indication: DIARRHOEA
     Dosage: UNK
     Dates: start: 2010, end: 2018
  87. MAXAIR                             /00587603/ [Concomitant]
     Indication: BRONCHITIS
     Dosage: UNK
     Dates: start: 2008
  88. NATALCARE [Concomitant]
     Indication: MULTI-VITAMIN DEFICIENCY
  89. RESTASIS [Concomitant]
     Active Substance: CYCLOSPORINE
     Indication: DRY EYE
  90. TOPIRAMATE. [Concomitant]
     Active Substance: TOPIRAMATE
     Indication: SEIZURE
     Dosage: UNK
     Dates: start: 2012, end: 2017
  91. NEXIUM [Suspect]
     Active Substance: ESOMEPRAZOLE MAGNESIUM
     Indication: GASTROOESOPHAGEAL REFLUX DISEASE
     Dosage: 40 MG, QD
     Route: 048
     Dates: start: 200703, end: 201608
  92. AZITHROMYCIN ANHYDROUS. [Concomitant]
     Active Substance: AZITHROMYCIN ANHYDROUS
     Dosage: UNK
     Dates: start: 200801
  93. TRAMADOL. [Concomitant]
     Active Substance: TRAMADOL
     Indication: ANALGESIC THERAPY
     Dosage: UNK
     Dates: start: 200604, end: 201707
  94. ALBUTEROL                          /00139501/ [Concomitant]
     Active Substance: ALBUTEROL
     Indication: BRONCHITIS
     Dosage: UNK
     Dates: start: 2006
  95. BANOPHEN [Concomitant]
     Active Substance: DIPHENHYDRAMINE HYDROCHLORIDE
     Indication: BRONCHITIS
     Dosage: UNK
     Dates: start: 2017
  96. BANOPHEN [Concomitant]
     Active Substance: DIPHENHYDRAMINE HYDROCHLORIDE
     Indication: HYPERSENSITIVITY
  97. BRIMONIDINE [Concomitant]
     Active Substance: BRIMONIDINE TARTRATE
     Indication: GLAUCOMA
     Dosage: UNK
     Dates: start: 2017
  98. CYMBALTA [Concomitant]
     Active Substance: DULOXETINE HYDROCHLORIDE
     Dosage: UNK
     Dates: start: 2012
  99. METHYLPREDNISOLONE. [Concomitant]
     Active Substance: METHYLPREDNISOLONE
     Dosage: UNK
     Dates: start: 2014
  100. METOPROLOL. [Concomitant]
     Active Substance: METOPROLOL
     Dosage: UNK
     Dates: start: 2015
  101. MIRTAZAPINE. [Concomitant]
     Active Substance: MIRTAZAPINE
     Indication: DEPRESSION
     Dosage: UNK
     Dates: start: 2007, end: 2018
  102. NASONEX [Concomitant]
     Active Substance: MOMETASONE FUROATE
     Indication: BRONCHITIS
     Dosage: UNK
     Dates: start: 2015
  103. NIFEDIAC CC [Concomitant]
     Active Substance: NIFEDIPINE
     Indication: HYPERTENSION
     Dosage: UNK
     Dates: start: 2006
  104. PROPRANOLOL [Concomitant]
     Active Substance: PROPRANOLOL HYDROCHLORIDE
     Indication: HYPERTENSION
     Dosage: UNK
     Dates: start: 2007
  105. RELPAX [Concomitant]
     Active Substance: ELETRIPTAN HYDROBROMIDE
     Indication: MIGRAINE
     Dosage: UNK
     Dates: start: 2006, end: 2015
  106. SERTRALINE HCL [Concomitant]
     Active Substance: SERTRALINE HYDROCHLORIDE
     Indication: DEPRESSION
     Dosage: UNK
     Dates: start: 2009, end: 2011

REACTIONS (2)
  - Acute kidney injury [Unknown]
  - Chronic kidney disease [Not Recovered/Not Resolved]

NARRATIVE: CASE EVENT DATE: 20160801
